FAERS Safety Report 11664000 (Version 1)
Quarter: 2015Q4

REPORT INFORMATION
  Report Type: Spontaneous
  Country: CN (occurrence: CN)
  Receive Date: 20151027
  Receipt Date: 20151027
  Transmission Date: 20160304
  Serious: Yes (Other)
  Sender: FDA-Public Use
  Company Number: CN-JNJFOC-20151015338

PATIENT

DRUGS (1)
  1. FENTANYL TRANSDERMAL SYSTEM [Suspect]
     Active Substance: FENTANYL
     Indication: CANCER PAIN
     Route: 048

REACTIONS (4)
  - Incorrect route of drug administration [Unknown]
  - Nausea [Unknown]
  - Dizziness [Unknown]
  - Respiratory depression [Unknown]
